FAERS Safety Report 23339450 (Version 1)
Quarter: 2023Q4

REPORT INFORMATION
  Report Type: Spontaneous
  Country: US (occurrence: None)
  Receive Date: 20231226
  Receipt Date: 20231226
  Transmission Date: 20240109
  Serious: Yes (Other)
  Sender: FDA-Public Use
  Company Number: None

PATIENT
  Age: 39 Year
  Sex: Female
  Weight: 63 kg

DRUGS (1)
  1. DUPIXENT [Suspect]
     Active Substance: DUPILUMAB

REACTIONS (6)
  - Nonspecific reaction [None]
  - Loss of consciousness [None]
  - Chest pain [None]
  - Vision blurred [None]
  - Arthropathy [None]
  - Injection site pain [None]

NARRATIVE: CASE EVENT DATE: 20220911
